FAERS Safety Report 14656402 (Version 1)
Quarter: 2018Q1

REPORT INFORMATION
  Report Type: Spontaneous
  Country: US (occurrence: US)
  Receive Date: 20180317
  Receipt Date: 20180317
  Transmission Date: 20180509
  Serious: Yes (Other)
  Sender: FDA-Public Use
  Company Number: None

PATIENT
  Age: 34 Year
  Sex: Female

DRUGS (15)
  1. HUMIRA [Suspect]
     Active Substance: ADALIMUMAB
     Indication: PSORIASIS
     Dosage: 1 PEN Q 14 DAYS SUBCUTANEOUSLY
     Route: 058
     Dates: start: 201706, end: 201711
  2. TRAMADOL. [Concomitant]
     Active Substance: TRAMADOL
  3. COSENTYX [Suspect]
     Active Substance: SECUKINUMAB
     Indication: ARTHRITIS
     Dosage: 2 PENS MONTHLY AS DIRECTED
     Dates: start: 201711
  4. ESZOPICLONE. [Concomitant]
     Active Substance: ESZOPICLONE
  5. ASHLYNA [Concomitant]
     Active Substance: ETHINYL ESTRADIOL\LEVONORGESTREL
  6. TOPIRAMATE. [Concomitant]
     Active Substance: TOPIRAMATE
  7. LEFLUNOMIDE. [Concomitant]
     Active Substance: LEFLUNOMIDE
  8. CLOBETASOL [Concomitant]
     Active Substance: CLOBETASOL
  9. COSENTYX [Suspect]
     Active Substance: SECUKINUMAB
     Indication: PSORIASIS
     Dosage: 2 PENS MONTHLY AS DIRECTED
     Dates: start: 201711
  10. PROMETHAZINE [Concomitant]
     Active Substance: PROMETHAZINE\PROMETHAZINE HYDROCHLORIDE
  11. ZOLPIDEM [Concomitant]
     Active Substance: ZOLPIDEM\ZOLPIDEM TARTRATE
  12. CARISOPRODOL. [Concomitant]
     Active Substance: CARISOPRODOL
  13. BACLOFEN. [Concomitant]
     Active Substance: BACLOFEN
  14. HUMIRA [Suspect]
     Active Substance: ADALIMUMAB
     Indication: ARTHRITIS
     Dosage: 1 PEN Q 14 DAYS SUBCUTANEOUSLY
     Route: 058
     Dates: start: 201706, end: 201711
  15. PORTIA-2B [Concomitant]

REACTIONS (4)
  - Spinal operation [None]
  - Drug ineffective [None]
  - Pneumonia [None]
  - Depression [None]
